FAERS Safety Report 6408655-7 (Version None)
Quarter: 2009Q4

REPORT INFORMATION
  Report Type: 
  Country: None (occurrence: None)
  Receive Date: 20091019
  Receipt Date: 20091006
  Transmission Date: 20100525
  Serious: Yes (Hospitalization)
  Sender: FDA-Public Use
  Company Number: CIP09002804

PATIENT
  Age: 77 Year
  Sex: Male

DRUGS (3)
  1. ACTONEL [Suspect]
     Dosage: ORAL
     Route: 048
  2. ASASANTIN (ACETYLSALICYLIC ACID, DIPYRIDAMOLE) [Concomitant]
  3. LANSOPRAZOLE [Concomitant]

REACTIONS (1)
  - TRANSFUSION [None]
